FAERS Safety Report 24090453 (Version 1)
Quarter: 2024Q3

REPORT INFORMATION
  Report Type: Spontaneous
  Country: US (occurrence: None)
  Receive Date: 20240712
  Receipt Date: 20240712
  Transmission Date: 20241017
  Serious: Yes (Death)
  Sender: Public
  Company Number: None

PATIENT
  Age: 81 Year
  Sex: Male
  Weight: 81 kg

DRUGS (1)
  1. OFEV [Suspect]
     Active Substance: NINTEDANIB
     Indication: Acute interstitial pneumonitis
     Dates: start: 20240501, end: 20240709

REACTIONS (6)
  - Acute myocardial infarction [None]
  - Drug-induced liver injury [None]
  - Gastrointestinal haemorrhage [None]
  - Iron deficiency anaemia [None]
  - Acute kidney injury [None]
  - Left ventricular failure [None]

NARRATIVE: CASE EVENT DATE: 20240703
